FAERS Safety Report 21126232 (Version 1)
Quarter: 2022Q3

REPORT INFORMATION
  Report Type: Spontaneous
  Country: US (occurrence: None)
  Receive Date: 20220724
  Receipt Date: 20220724
  Transmission Date: 20221026
  Serious: No
  Sender: FDA-Public Use
  Company Number: None

PATIENT
  Age: 39 Year
  Sex: Female
  Weight: 72 kg

DRUGS (3)
  1. SUBOXONE [Suspect]
     Active Substance: BUPRENORPHINE HYDROCHLORIDE\NALOXONE HYDROCHLORIDE
     Indication: Dependence
     Dosage: OTHER QUANTITY : 1 STRIP;?FREQUENCY : TWICE A DAY;?
     Route: 060
     Dates: start: 20180701
  2. TYLENOL [Concomitant]
     Active Substance: ACETAMINOPHEN
  3. PROBIOTICS NOS [Concomitant]
     Active Substance: PROBIOTICS NOS

REACTIONS (5)
  - Tooth erosion [None]
  - Dental caries [None]
  - Fear of disease [None]
  - Swelling face [None]
  - Localised infection [None]
